FAERS Safety Report 25396254 (Version 1)
Quarter: 2025Q2

REPORT INFORMATION
  Report Type: Spontaneous
  Country: TR (occurrence: TR)
  Receive Date: 20250604
  Receipt Date: 20250604
  Transmission Date: 20250716
  Serious: Yes (Other)
  Sender: AMGEN
  Company Number: TR-AMGEN-TURSP2025107431

PATIENT
  Age: 27 Year
  Sex: Male

DRUGS (5)
  1. ADALIMUMAB [Suspect]
     Active Substance: ADALIMUMAB
     Indication: Hidradenitis
     Route: 065
  2. ACITRETIN [Concomitant]
     Active Substance: ACITRETIN
     Indication: Hidradenitis
  3. COLCHICINE [Concomitant]
     Active Substance: COLCHICINE
     Indication: Hidradenitis
  4. INFLIXIMAB [Concomitant]
     Active Substance: INFLIXIMAB
     Indication: Hidradenitis
  5. CANAKINUMAB [Concomitant]
     Active Substance: CANAKINUMAB
     Indication: Hidradenitis

REACTIONS (2)
  - End stage renal disease [Unknown]
  - Therapeutic product effect incomplete [Unknown]
